FAERS Safety Report 22940955 (Version 3)
Quarter: 2024Q1

REPORT INFORMATION
  Report Type: Spontaneous
  Country: US (occurrence: US)
  Receive Date: 20230913
  Receipt Date: 20240201
  Transmission Date: 20240410
  Serious: Yes (Hospitalization, Other)
  Sender: FDA-Public Use
  Company Number: US-BoehringerIngelheim-2023-BI-261064

PATIENT
  Age: 47 Year
  Sex: Female

DRUGS (3)
  1. SPIRIVA [Suspect]
     Active Substance: TIOTROPIUM BROMIDE MONOHYDRATE
     Indication: Product used for unknown indication
     Dates: start: 20230808
  2. JARDIANCE [Suspect]
     Active Substance: EMPAGLIFLOZIN
     Indication: Product used for unknown indication
  3. JARDIANCE [Suspect]
     Active Substance: EMPAGLIFLOZIN

REACTIONS (6)
  - COVID-19 [Unknown]
  - Left ventricular failure [Unknown]
  - Pulmonary hypertension [Unknown]
  - Tremor [Unknown]
  - Speech disorder [Not Recovered/Not Resolved]
  - Pneumonitis [Unknown]

NARRATIVE: CASE EVENT DATE: 20230101
